FAERS Safety Report 9904317 (Version 1)
Quarter: 2014Q1

REPORT INFORMATION
  Report Type: Spontaneous
  Country: US (occurrence: US)
  Receive Date: 20140218
  Receipt Date: 20140218
  Transmission Date: 20141002
  Serious: Yes (Other)
  Sender: FDA-Public Use
  Company Number: US-PFIZER INC-2014044124

PATIENT
  Age: 62 Year
  Sex: Male
  Weight: 106.58 kg

DRUGS (4)
  1. EFFEXOR XR [Suspect]
     Dosage: 150 MG (TWO CAPSULES OF 75MG), 1X/DAY
     Route: 048
  2. EFFEXOR XR [Suspect]
     Dosage: 150 MG (ONE CAPSULE OF 150MG), 1X/DAY
     Route: 048
  3. PROPRANOLOL [Concomitant]
     Dosage: UNK
  4. ATORVASTATIN [Concomitant]
     Dosage: 20 MG, UNK

REACTIONS (4)
  - Prostatic disorder [Unknown]
  - Drug intolerance [Unknown]
  - Product taste abnormal [Unknown]
  - Product physical issue [Unknown]
